FAERS Safety Report 7885448-5 (Version None)
Quarter: 2011Q4

REPORT INFORMATION
  Report Type: 
  Country: None (occurrence: None)
  Receive Date: 20111102
  Receipt Date: 20111020
  Transmission Date: 20120403
  Serious: Yes (Hospitalization, Other)
  Sender: FDA-Public Use
  Company Number: AU-ROCHE-1006003

PATIENT
  Age: 23 Year
  Sex: Male

DRUGS (1)
  1. AVASTIN [Suspect]
     Indication: PRODUCT USED FOR UNKNOWN INDICATION

REACTIONS (10)
  - MEMORY IMPAIRMENT [None]
  - GRAND MAL CONVULSION [None]
  - WHITE BLOOD CELL COUNT INCREASED [None]
  - ENCEPHALITIS [None]
  - DEPRESSED LEVEL OF CONSCIOUSNESS [None]
  - VENOUS THROMBOSIS [None]
  - NEOPLASM [None]
  - CONFUSIONAL STATE [None]
  - AGGRESSION [None]
  - HAEMATEMESIS [None]
